FAERS Safety Report 6103114-3 (Version None)
Quarter: 2009Q1

REPORT INFORMATION
  Report Type: 
  Country: None (occurrence: None)
  Receive Date: 20090305
  Receipt Date: 20090225
  Transmission Date: 20090719
  Serious: Yes (Hospitalization)
  Sender: FDA-Public Use
  Company Number: FR-BAXTER-2009BH003325

PATIENT
  Age: 15 Year
  Sex: Male
  Weight: 63 kg

DRUGS (9)
  1. IFOSFAMIDE GENERIC [Suspect]
     Indication: BONE SARCOMA
     Route: 042
     Dates: start: 20080730
  2. ETOPOSIDE [Suspect]
     Indication: BONE SARCOMA
     Route: 042
     Dates: start: 20080730
  3. ZOLEDRONIC ACID [Suspect]
     Indication: BONE SARCOMA
     Route: 065
  4. METHOTREXATE [Concomitant]
     Dates: start: 20080709
  5. CALCIPRAT [Concomitant]
  6. STEROGYL [Concomitant]
  7. VITAMIN D [Concomitant]
  8. CALCIUM [Concomitant]
  9. NEURONTIN [Concomitant]

REACTIONS (2)
  - DEVICE RELATED INFECTION [None]
  - FEBRILE BONE MARROW APLASIA [None]
